FAERS Safety Report 12718897 (Version 1)
Quarter: 2016Q3

REPORT INFORMATION
  Report Type: Spontaneous
  Country: US (occurrence: US)
  Receive Date: 20160906
  Receipt Date: 20160906
  Transmission Date: 20161109
  Serious: No
  Sender: FDA-Public Use
  Company Number: US-GLAXOSMITHKLINE-US2016GSK127843

PATIENT
  Age: 47 Year
  Sex: Female

DRUGS (1)
  1. CAMBIA [Suspect]
     Active Substance: DICLOFENAC POTASSIUM
     Indication: MIGRAINE
     Dosage: UNK (50 MG, SINGLE (1 PACKET IN 2 TO 4 TABLESPOONS OF WATER DAILY AS NEEDED)
     Route: 048
     Dates: start: 20160426, end: 20160827

REACTIONS (1)
  - Drug ineffective [Unknown]
